FAERS Safety Report 5977569-9 (Version None)
Quarter: 2008Q4

REPORT INFORMATION
  Report Type: 
  Country: None (occurrence: None)
  Receive Date: 20081201
  Receipt Date: 20081201
  Transmission Date: 20090506
  Serious: Yes (Hospitalization)
  Sender: FDA-Public Use
  Company Number: None

PATIENT
  Age: 43 Year
  Sex: Female
  Weight: 99.7913 kg

DRUGS (1)
  1. DIVALPROEX SODIUM [Suspect]
     Indication: AFFECTIVE DISORDER
     Dosage: 1000MG HS PO
     Route: 048
     Dates: start: 20080825, end: 20080910

REACTIONS (6)
  - ATAXIA [None]
  - CONFUSIONAL STATE [None]
  - DRUG LEVEL INCREASED [None]
  - DYSARTHRIA [None]
  - PRODUCT QUALITY ISSUE [None]
  - SEDATION [None]
